FAERS Safety Report 21071219 (Version 1)
Quarter: 2022Q3

REPORT INFORMATION
  Report Type: Spontaneous
  Country: US (occurrence: None)
  Receive Date: 20220712
  Receipt Date: 20220712
  Transmission Date: 20221026
  Serious: Yes (Death, Hospitalization)
  Sender: FDA-Public Use
  Company Number: None

PATIENT
  Age: 82 Year
  Sex: Male
  Weight: 104.33 kg

DRUGS (7)
  1. INLYTA [Suspect]
     Active Substance: AXITINIB
     Dosage: FREQUENCY : TWICE A DAY;?
     Route: 048
  2. CARDURA [Concomitant]
     Active Substance: DOXAZOSIN MESYLATE
  3. GLUCOSAMINE [Concomitant]
     Active Substance: GLUCOSAMINE
  4. LATANOPROST [Concomitant]
     Active Substance: LATANOPROST
  5. METAMUCIL [Concomitant]
     Active Substance: PLANTAGO SEED
  6. OLMESARTAN [Concomitant]
     Active Substance: OLMESARTAN
  7. PROPRANOLOL [Concomitant]
     Active Substance: PROPRANOLOL HYDROCHLORIDE

REACTIONS (2)
  - Pneumonia [None]
  - Haemorrhage [None]
